FAERS Safety Report 5092692-1 (Version None)
Quarter: 2006Q3

REPORT INFORMATION
  Report Type: 
  Country: None (occurrence: None)
  Receive Date: 20060830
  Receipt Date: 20060730
  Transmission Date: 20061208
  Serious: Yes (Hospitalization)
  Sender: FDA-Public Use
  Company Number: PHHO2006BR12616

PATIENT
  Age: 58 Year
  Sex: Male
  Weight: 56.6 kg

DRUGS (2)
  1. RAD001A [Suspect]
     Indication: HEART TRANSPLANT
     Dosage: 0.5 MG / DAY
     Route: 048
     Dates: start: 20060501, end: 20060803
  2. SANDIMMUNE [Suspect]
     Indication: HEART TRANSPLANT
     Dosage: 75 MG, BID
     Route: 048
     Dates: start: 20060501, end: 20060810

REACTIONS (5)
  - ABDOMINAL PAIN [None]
  - CALCULUS URETERIC [None]
  - HAEMATURIA [None]
  - NEPHROLITHIASIS [None]
  - URETERIC CALCULUS REMOVAL [None]
